FAERS Safety Report 4962912-X (Version None)
Quarter: 2006Q1

REPORT INFORMATION
  Report Type: 
  Country: None (occurrence: None)
  Receive Date: 20060331
  Receipt Date: 20060321
  Transmission Date: 20060701
  Serious: Yes (Hospitalization, Other)
  Sender: FDA-Public Use
  Company Number: HQWYE427521MAR06

PATIENT
  Age: 24 Year
  Sex: Male

DRUGS (4)
  1. ADVIL [Suspect]
     Indication: INFLUENZA
     Dosage: 3 TABLETS PER DAY ORAL
     Route: 048
     Dates: start: 20060105, end: 20060101
  2. ADVIL [Suspect]
     Indication: PYREXIA
     Dosage: 3 TABLETS PER DAY ORAL
     Route: 048
     Dates: start: 20060105, end: 20060101
  3. ACETAMINOPHEN [Suspect]
     Indication: INFLUENZA
     Dates: start: 20060105, end: 20060101
  4. SURGAM (TIAPROFENIC ACID,) [Suspect]
     Dates: start: 20060101, end: 20060101

REACTIONS (1)
  - STEVENS-JOHNSON SYNDROME [None]
